FAERS Safety Report 6730336-0 (Version None)
Quarter: 2010Q2

REPORT INFORMATION
  Report Type: 
  Country: None (occurrence: None)
  Receive Date: 20100518
  Receipt Date: 20100507
  Transmission Date: 20101027
  Serious: Yes (Death)
  Sender: FDA-Public Use
  Company Number: A0770309A

PATIENT
  Age: 77 Year
  Sex: Male
  Weight: 102.3 kg

DRUGS (25)
  1. AVANDIA [Suspect]
     Indication: DIABETES MELLITUS
     Dosage: 4MG PER DAY
     Route: 048
     Dates: start: 20030101, end: 20070102
  2. AVANDAMET [Suspect]
     Indication: DIABETES MELLITUS
     Route: 048
     Dates: start: 20040709, end: 20050101
  3. ACTOS [Concomitant]
  4. GLYBURIDE [Concomitant]
  5. GLUCOTROL XL [Concomitant]
  6. METAGLIP [Concomitant]
  7. TOPROL-XL [Concomitant]
  8. LANOXIN [Concomitant]
  9. PRINIVIL [Concomitant]
  10. GEODON [Concomitant]
  11. ZOLOFT [Concomitant]
  12. LEVOTHYROXINE SODIUM [Concomitant]
  13. FLOMAX [Concomitant]
  14. GABAPENTIN [Concomitant]
  15. GLYBURIDE [Concomitant]
     Dates: end: 20050101
  16. NOVOLIN [Concomitant]
  17. GLYBURIDE [Concomitant]
  18. NORVASC [Concomitant]
  19. METOPROLOL TARTRATE [Concomitant]
  20. GLUCOTROL XL [Concomitant]
  21. ZOLOFT [Concomitant]
  22. FLOMAX [Concomitant]
  23. PRINIVIL [Concomitant]
  24. FERROUS SULFATE TAB [Concomitant]
  25. LANOXIN [Concomitant]

REACTIONS (2)
  - ARRHYTHMIA [None]
  - MYOCARDIAL INFARCTION [None]
